FAERS Safety Report 7985619-3 (Version None)
Quarter: 2011Q4

REPORT INFORMATION
  Report Type: 
  Country: None (occurrence: None)
  Receive Date: 20111216
  Receipt Date: 20111213
  Transmission Date: 20120403
  Serious: Yes (Life-Threatening)
  Sender: FDA-Public Use
  Company Number: DE-BRISTOL-MYERS SQUIBB COMPANY-16261737

PATIENT
  Age: 85 Year
  Sex: Female

DRUGS (3)
  1. HYDREA [Suspect]
     Indication: MYELOPROLIFERATIVE DISORDER
     Dates: start: 20111122
  2. MARCUMAR [Suspect]
  3. HYDROXYUREA [Suspect]

REACTIONS (1)
  - INTERNATIONAL NORMALISED RATIO INCREASED [None]
